FAERS Safety Report 9507332 (Version 1)
Quarter: 2013Q3

REPORT INFORMATION
  Report Type: Spontaneous
  Country: IE (occurrence: IE)
  Receive Date: 20130909
  Receipt Date: 20130909
  Transmission Date: 20140515
  Serious: Yes (Other)
  Sender: FDA-Public Use
  Company Number: IE-PFIZER INC-2013255257

PATIENT
  Age: 35 Year
  Sex: Female

DRUGS (3)
  1. SOLU-MEDRONE [Suspect]
     Indication: MULTIPLE SCLEROSIS
     Dosage: 1 G
     Route: 042
     Dates: start: 20130715
  2. ZANTAC [Concomitant]
     Indication: PROPHYLAXIS
     Dosage: 150 MG
     Route: 048
     Dates: start: 20130715
  3. ZANTAC [Concomitant]
     Indication: GASTROINTESTINAL DISORDER

REACTIONS (3)
  - Pruritus [Recovered/Resolved]
  - Erythema [Recovered/Resolved]
  - Ocular hyperaemia [Recovered/Resolved]
